FAERS Safety Report 8960400 (Version 1)
Quarter: 2012Q4

REPORT INFORMATION
  Report Type: 
  Country: US (occurrence: US)
  Receive Date: 20121211
  Receipt Date: 20121211
  Transmission Date: 20130627
  Serious: Yes (Other)
  Sender: FDA-Public Use
  Company Number: CHPA2012US024658

PATIENT
  Age: 54 Year
  Sex: Female

DRUGS (1)
  1. THERAFLU NIGHTTIME SEVERE COLD AND COUGH [Suspect]
     Indication: NASOPHARYNGITIS
     Dosage: Unk, Unk
     Route: 048
     Dates: end: 2011

REACTIONS (3)
  - Ear infection [Recovered/Resolved]
  - Sinusitis [Recovered/Resolved]
  - Nasopharyngitis [Recovered/Resolved]
